FAERS Safety Report 6190122-X (Version None)
Quarter: 2009Q2

REPORT INFORMATION
  Report Type: 
  Country: None (occurrence: None)
  Receive Date: 20090514
  Receipt Date: 20090507
  Transmission Date: 20091009
  Serious: Yes (Other)
  Sender: FDA-Public Use
  Company Number: JP-JNJFOC-20090501813

PATIENT
  Age: 77 Year
  Sex: Male

DRUGS (13)
  1. DUROTEP MT PATCH [Suspect]
     Indication: DRUG USE FOR UNKNOWN INDICATION
     Route: 062
  2. OPSO [Concomitant]
     Route: 048
  3. LOXONIN [Concomitant]
     Route: 065
  4. MAGNESIUM OXIDE [Concomitant]
     Route: 065
  5. CALONAL [Concomitant]
     Route: 065
  6. LENDORMIN [Concomitant]
     Route: 048
  7. LASIX [Concomitant]
     Route: 065
  8. TAKEPRON [Concomitant]
     Route: 065
  9. HARNAL [Concomitant]
     Route: 048
  10. HOCHU-EKKI-TO(CHINESE DRUG) [Concomitant]
     Route: 048
  11. EVIPROSTAT [Concomitant]
     Route: 048
  12. NOVAMIN [Concomitant]
     Route: 065
  13. VITAMIN PREPARATION COMPOUND [Concomitant]
     Route: 041

REACTIONS (1)
  - DELIRIUM [None]
